FAERS Safety Report 16855972 (Version 1)
Quarter: 2019Q3

REPORT INFORMATION
  Report Type: Spontaneous
  Country: US (occurrence: US)
  Receive Date: 20190926
  Receipt Date: 20190926
  Transmission Date: 20191005
  Serious: Yes (Other)
  Sender: FDA-Public Use
  Company Number: US-PFIZER INC-2019397853

PATIENT
  Age: 12 Year
  Sex: Female

DRUGS (8)
  1. IMMUNOGLOBULIN HUMAN [Suspect]
     Active Substance: HUMAN IMMUNOGLOBULIN G
     Indication: ENDOTHELIAL DYSFUNCTION
  2. METHYLPREDNISOLONE ACETATE. [Suspect]
     Active Substance: METHYLPREDNISOLONE ACETATE
     Indication: MYOPATHY
     Dosage: UNK, WEEKLY (INFUSIONS)
     Route: 042
  3. IMMUNOGLOBULIN HUMAN [Suspect]
     Active Substance: HUMAN IMMUNOGLOBULIN G
     Indication: ATROPHY
  4. METHYLPREDNISOLONE ACETATE. [Suspect]
     Active Substance: METHYLPREDNISOLONE ACETATE
     Indication: CONNECTIVE TISSUE DISORDER
  5. IMMUNOGLOBULIN HUMAN [Suspect]
     Active Substance: HUMAN IMMUNOGLOBULIN G
     Indication: MYOPATHY
     Dosage: UNK, MONTHLY (INFUSIONS)
     Route: 042
  6. IMMUNOGLOBULIN HUMAN [Suspect]
     Active Substance: HUMAN IMMUNOGLOBULIN G
     Indication: CONNECTIVE TISSUE DISORDER
  7. METHYLPREDNISOLONE ACETATE. [Suspect]
     Active Substance: METHYLPREDNISOLONE ACETATE
     Indication: ATROPHY
  8. METHYLPREDNISOLONE ACETATE. [Suspect]
     Active Substance: METHYLPREDNISOLONE ACETATE
     Indication: ENDOTHELIAL DYSFUNCTION

REACTIONS (3)
  - Rash erythematous [Recovered/Resolved]
  - Papule [Recovered/Resolved]
  - Eyelid rash [Recovered/Resolved]
